FAERS Safety Report 8981070 (Version 1)
Quarter: 2012Q4

REPORT INFORMATION
  Report Type: 
  Country: US (occurrence: US)
  Receive Date: 20121221
  Receipt Date: 20121221
  Transmission Date: 20130627
  Serious: Yes (Other)
  Sender: FDA-Public Use
  Company Number: US-US-EMD SERONO, INC.-7180074

PATIENT
  Sex: Female

DRUGS (2)
  1. REBIF [Suspect]
     Indication: MULTIPLE SCLEROSIS
     Route: 058
     Dates: start: 20120605, end: 20121130
  2. UNSPECIFIED ECZEMA MEDICATION [Concomitant]
     Indication: ECZEMA

REACTIONS (3)
  - Viral infection [Unknown]
  - Injection site ulcer [Unknown]
  - Rash generalised [Not Recovered/Not Resolved]
